FAERS Safety Report 5640279-1 (Version None)
Quarter: 2008Q1

REPORT INFORMATION
  Report Type: 
  Country: None (occurrence: None)
  Receive Date: 20080227
  Receipt Date: 20080123
  Transmission Date: 20080703
  Serious: No
  Sender: FDA-Public Use
  Company Number: US-BAXTER-2008BH000168

PATIENT
  Age: 67 Year
  Sex: Male
  Weight: 125 kg

DRUGS (3)
  1. HEPARIN SODIUM [Suspect]
     Indication: PROPHYLAXIS
     Route: 040
     Dates: start: 20080105, end: 20080105
  2. HEPARIN SODIUM [Suspect]
     Route: 040
     Dates: start: 20080106, end: 20080106
  3. HEPARIN SODIUM [Suspect]
     Route: 040
     Dates: start: 20080106, end: 20080106

REACTIONS (3)
  - DIZZINESS [None]
  - ERYTHEMA [None]
  - FLUSHING [None]
